FAERS Safety Report 26123880 (Version 1)
Quarter: 2025Q4

REPORT INFORMATION
  Report Type: Spontaneous
  Country: GB (occurrence: GB)
  Receive Date: 20251205
  Receipt Date: 20251205
  Transmission Date: 20260119
  Serious: Yes (Disabling, Other)
  Sender: ACCORD
  Company Number: None

PATIENT
  Age: 84 Year
  Sex: Male

DRUGS (4)
  1. AMITRIPTYLINE [Suspect]
     Active Substance: AMITRIPTYLINE
     Indication: Migraine
     Dosage: 50 MG ONCE (OCE) A DAY AT NIGHT
     Dates: start: 20250608
  2. BETAMETHASONE [Concomitant]
     Active Substance: BETAMETHASONE
     Dosage: DAILY
  3. ATORVASTATIN [Concomitant]
     Active Substance: ATORVASTATIN
     Indication: Blood cholesterol increased
     Dosage: ONE AT NIGHT
  4. SUMATRIPTAN [Concomitant]
     Active Substance: SUMATRIPTAN

REACTIONS (2)
  - Sudden hearing loss [Not Recovered/Not Resolved]
  - Sleep terror [Unknown]

NARRATIVE: CASE EVENT DATE: 20250701
